FAERS Safety Report 6714988-7 (Version None)
Quarter: 2010Q2

REPORT INFORMATION
  Report Type: 
  Country: None (occurrence: None)
  Receive Date: 20100507
  Receipt Date: 20100428
  Transmission Date: 20101027
  Serious: Yes (Other)
  Sender: FDA-Public Use
  Company Number: JP-JNJFOC-20100500218

PATIENT
  Age: 9 Decade
  Sex: Female

DRUGS (1)
  1. RISPERDAL [Suspect]
     Indication: RESTLESSNESS
     Route: 048

REACTIONS (1)
  - DEPRESSION [None]
